FAERS Safety Report 5663441-0 (Version None)
Quarter: 2008Q1

REPORT INFORMATION
  Report Type: 
  Country: None (occurrence: None)
  Receive Date: 20080310
  Receipt Date: 20080222
  Transmission Date: 20080703
  Serious: Yes (Other)
  Sender: FDA-Public Use
  Company Number: 2008JP000856

PATIENT
  Age: 20 Year
  Sex: 0

DRUGS (1)
  1. PROGRAF [Suspect]

REACTIONS (1)
  - NEPHROTIC SYNDROME [None]
